FAERS Safety Report 23369951 (Version 1)
Quarter: 2024Q1

REPORT INFORMATION
  Report Type: Spontaneous
  Country: BR (occurrence: BR)
  Receive Date: 20240105
  Receipt Date: 20240105
  Transmission Date: 20240410
  Serious: Yes (Other)
  Sender: FDA-Public Use
  Company Number: BR-BAXTER-2023BAX038677

PATIENT
  Age: 43 Year
  Sex: Female

DRUGS (3)
  1. IRON [Suspect]
     Active Substance: IRON
     Indication: Serum ferritin abnormal
     Dosage: 2 AMPOULES DILUTED IN 250 ML OF 0.9% SALINE SOLUTION
     Route: 042
     Dates: start: 20231206
  2. IRON [Suspect]
     Active Substance: IRON
     Indication: Haemoglobin abnormal
  3. SODIUM CHLORIDE [Suspect]
     Active Substance: SODIUM CHLORIDE
     Indication: Medication dilution
     Dosage: 250 ML OF 0.9% SALINE SOLUTION USED TO DILUTE 2 AMPOULE OF SUCROFER
     Route: 042
     Dates: start: 20231206

REACTIONS (4)
  - Abdominal pain [Unknown]
  - Pruritus [Unknown]
  - Rash [Unknown]
  - Hypotension [Unknown]

NARRATIVE: CASE EVENT DATE: 20231206
